FAERS Safety Report 5596483-4 (Version None)
Quarter: 2008Q1

REPORT INFORMATION
  Report Type: 
  Country: None (occurrence: None)
  Receive Date: 20080118
  Receipt Date: 20080108
  Transmission Date: 20080703
  Serious: Yes (Other)
  Sender: FDA-Public Use
  Company Number: CH-PFIZER INC-2007100286

PATIENT
  Sex: Male
  Weight: 89 kg

DRUGS (4)
  1. LYRICA [Suspect]
     Indication: NEURALGIA
     Route: 048
     Dates: start: 20070903, end: 20070926
  2. LYRICA [Suspect]
     Indication: PAIN
  3. TRAMADOL HCL [Suspect]
     Indication: PAIN
     Route: 048
     Dates: start: 20070903, end: 20070926
  4. DAFALGAN [Concomitant]
     Route: 048

REACTIONS (2)
  - EPILEPSY [None]
  - ROAD TRAFFIC ACCIDENT [None]
